FAERS Safety Report 4533097-9 (Version None)
Quarter: 2004Q4

REPORT INFORMATION
  Report Type: 
  Country: None (occurrence: None)
  Receive Date: 20041206
  Receipt Date: 20041013
  Transmission Date: 20050328
  Serious: No
  Sender: FDA-Public Use
  Company Number: USA041081142

PATIENT
  Age: 65 Year
  Sex: Male

DRUGS (6)
  1. CYMBALTA (DULOXETINE HYDROCHLORIDE) [Suspect]
     Dosage: 120 MG
  2. LAMICTAL [Concomitant]
  3. ATIVAN [Concomitant]
  4. SEROQUEL [Concomitant]
  5. EFFEXOR [Concomitant]
  6. RITALIN [Concomitant]

REACTIONS (2)
  - EPISTAXIS [None]
  - PRESCRIBED OVERDOSE [None]
